FAERS Safety Report 8368085-8 (Version None)
Quarter: 2012Q2

REPORT INFORMATION
  Report Type: 
  Country: None (occurrence: None)
  Receive Date: 20120517
  Receipt Date: 20120511
  Transmission Date: 20120825
  Serious: Yes (Other)
  Sender: FDA-Public Use
  Company Number: TR-PFIZER INC-2012116889

PATIENT
  Age: 63 Year
  Sex: Male

DRUGS (3)
  1. AMLODIPINE BESYLATE [Suspect]
     Indication: HYPERTENSION
     Dosage: 10 MG, UNK
  2. ACETYLSALICYLIC ACID [Concomitant]
     Dosage: 300 MG, UNK
  3. RAMIPRIL/HYDROCHLOROTHIAZIDE [Concomitant]

REACTIONS (1)
  - DELIRIUM [None]
